FAERS Safety Report 12087000 (Version 2)
Quarter: 2016Q1

REPORT INFORMATION
  Report Type: Spontaneous
  Country: US (occurrence: US)
  Receive Date: 20160217
  Receipt Date: 20160217
  Transmission Date: 20160526
  Serious: No
  Sender: FDA-Public Use
  Company Number: US-ALLERGAN-1507535US

PATIENT
  Age: 32 Year
  Sex: Female

DRUGS (3)
  1. RESTASIS [Suspect]
     Active Substance: CYCLOSPORINE
     Indication: DRY EYE
  2. SYSTANE (HYPROMELLOSE 2910 (4000 MPA.S)) [Concomitant]
     Active Substance: HYPROMELLOSE 2910 (4000 MPA.S)
     Indication: DRY EYE
     Dosage: UNK
     Dates: start: 2014
  3. RESTASIS [Suspect]
     Active Substance: CYCLOSPORINE
     Indication: LACRIMATION DECREASED
     Dosage: 2 GTT, BID
     Route: 047
     Dates: start: 20141201, end: 20150501

REACTIONS (4)
  - Dry eye [Not Recovered/Not Resolved]
  - Eye irritation [Not Recovered/Not Resolved]
  - Drug ineffective [Unknown]
  - Ocular hyperaemia [Not Recovered/Not Resolved]

NARRATIVE: CASE EVENT DATE: 20141201
